FAERS Safety Report 16260121 (Version 1)
Quarter: 2019Q2

REPORT INFORMATION
  Report Type: Spontaneous
  Country: US (occurrence: US)
  Receive Date: 20190430
  Receipt Date: 20190430
  Transmission Date: 20190711
  Serious: Yes (Hospitalization)
  Sender: FDA-Public Use
  Company Number: None

PATIENT
  Sex: Female

DRUGS (7)
  1. FOLIC ACID / METOPROLOL [Concomitant]
  2. PREDNISONE. [Concomitant]
     Active Substance: PREDNISONE
  3. POT CHLORIDE / POTASSIUM [Concomitant]
  4. DIGOXIN / ELIQUIS [Concomitant]
  5. ESOMEPRAZOLE / FLUTICASONE [Concomitant]
  6. HUMIRA [Suspect]
     Active Substance: ADALIMUMAB
     Indication: CROHN^S DISEASE
     Dosage: ?          OTHER FREQUENCY:EVERY OTHER WEEK;?
     Route: 058
     Dates: start: 20150305
  7. CEPHALEXIN / DIGOX [Concomitant]

REACTIONS (2)
  - Urinary tract infection [None]
  - Colitis [None]
